FAERS Safety Report 14312115 (Version 4)
Quarter: 2019Q1

REPORT INFORMATION
  Report Type: Spontaneous
  Country: US (occurrence: US)
  Receive Date: 20171221
  Receipt Date: 20190322
  Transmission Date: 20190417
  Serious: Yes (Life-Threatening, Hospitalization, Other)
  Sender: FDA-Public Use
  Company Number: US-CONCORDIA PHARMACEUTICALS INC.-GSH201712-006671

PATIENT
  Age: 64 Year
  Sex: Female
  Weight: 67.6 kg

DRUGS (65)
  1. ENBREL [Suspect]
     Active Substance: ETANERCEPT
     Indication: RHEUMATOID ARTHRITIS
     Route: 058
     Dates: start: 20110105, end: 20111114
  2. URSODIOL. [Suspect]
     Active Substance: URSODIOL
     Indication: WEIGHT DECREASED
     Route: 048
  3. PREDNISONE. [Concomitant]
     Active Substance: PREDNISONE
  4. PREDNISONE. [Concomitant]
     Active Substance: PREDNISONE
  5. TRAZODONE [Concomitant]
     Active Substance: TRAZODONE HYDROCHLORIDE
  6. MILK OF MAGNESIA [Concomitant]
     Active Substance: MAGNESIUM HYDROXIDE
  7. MICONAZOLE NITRATE. [Concomitant]
     Active Substance: MICONAZOLE NITRATE
  8. ALPRAZOLAM. [Concomitant]
     Active Substance: ALPRAZOLAM
  9. LISINOPRIL. [Concomitant]
     Active Substance: LISINOPRIL
  10. VESICARE [Concomitant]
     Active Substance: SOLIFENACIN SUCCINATE
  11. ENBREL [Suspect]
     Active Substance: ETANERCEPT
     Route: 058
     Dates: end: 20120314
  12. VITAMIN B12 [Concomitant]
     Active Substance: CYANOCOBALAMIN
  13. BENICAR HCT [Concomitant]
     Active Substance: HYDROCHLOROTHIAZIDE\OLMESARTAN MEDOXOMIL
  14. ARAVA [Concomitant]
     Active Substance: LEFLUNOMIDE
  15. SYNVISC (HYLAN G-F 20) [Concomitant]
     Dates: start: 20170822
  16. ALLERGY RELIEF [Concomitant]
  17. TOPROL XL [Concomitant]
     Active Substance: METOPROLOL SUCCINATE
  18. ASPIR 81 [Concomitant]
     Active Substance: ASPIRIN
  19. MISOPROSTOL. [Concomitant]
     Active Substance: MISOPROSTOL
  20. AZOR [Concomitant]
     Active Substance: AMLODIPINE BESYLATE\OLMESARTAN MEDOXOMIL
  21. ASA [Concomitant]
     Active Substance: ASPIRIN
  22. PERCOCET [Concomitant]
     Active Substance: ACETAMINOPHEN\OXYCODONE HYDROCHLORIDE
  23. REMICADE [Concomitant]
     Active Substance: INFLIXIMAB
  24. SKELAXIN [Concomitant]
     Active Substance: METAXALONE
  25. POLYETHYLENE GLYCOL 3350. [Concomitant]
     Active Substance: POLYETHYLENE GLYCOL 3350
  26. VICOPROFEN [Concomitant]
     Active Substance: HYDROCODONE BITARTRATE\IBUPROFEN
  27. VIOXX [Concomitant]
     Active Substance: ROFECOXIB
  28. PLAQUENIL [Suspect]
     Active Substance: HYDROXYCHLOROQUINE SULFATE
     Indication: PRODUCT USED FOR UNKNOWN INDICATION
     Dosage: UNKNOWN
     Route: 065
     Dates: start: 2009
  29. FOSAMAX [Suspect]
     Active Substance: ALENDRONATE SODIUM
     Indication: PAIN IN JAW
     Dosage: UNKNOWN
     Route: 065
     Dates: start: 201201, end: 201309
  30. MTX [Concomitant]
     Active Substance: METHOTREXATE SODIUM
  31. XELJANZ XR [Concomitant]
     Active Substance: TOFACITINIB CITRATE
     Dates: end: 20190103
  32. SYNVISC (HYLAN G-F 20) [Concomitant]
     Dates: start: 201608, end: 201608
  33. NEXIUM [Concomitant]
     Active Substance: ESOMEPRAZOLE MAGNESIUM
  34. CALCIUM [Concomitant]
     Active Substance: CALCIUM
  35. SYNVISC-ONE [Concomitant]
     Active Substance: HYLAN G-F 20
     Dates: start: 20100430
  36. SYNVISC-ONE [Concomitant]
     Active Substance: HYLAN G-F 20
     Dates: start: 20110524
  37. MOMETASONE [Concomitant]
     Active Substance: MOMETASONE
  38. COMPAZINE [Concomitant]
     Active Substance: PROCHLORPERAZINE MALEATE
  39. PRILOSEC [Concomitant]
     Active Substance: OMEPRAZOLE MAGNESIUM
  40. CYTOTEC [Concomitant]
     Active Substance: MISOPROSTOL
  41. SYNVISC-ONE [Concomitant]
     Active Substance: HYLAN G-F 20
     Dates: start: 20120404
  42. ESTRACE [Concomitant]
     Active Substance: ESTRADIOL
  43. TYLENOL EXTRA STRENGTH [Concomitant]
     Active Substance: ACETAMINOPHEN
  44. CRANBERRY EXTRACT [Concomitant]
     Active Substance: CRANBERRY JUICE
  45. FLEXERIL [Concomitant]
     Active Substance: CYCLOBENZAPRINE HYDROCHLORIDE
  46. HUMIRA [Concomitant]
     Active Substance: ADALIMUMAB
  47. PREDNISONE. [Concomitant]
     Active Substance: PREDNISONE
     Dates: start: 20131120
  48. ZYRTEC [Concomitant]
     Active Substance: CETIRIZINE HYDROCHLORIDE
  49. WELCHOL [Concomitant]
     Active Substance: COLESEVELAM HYDROCHLORIDE
  50. SYNVISC (HYLAN G-F 20) [Concomitant]
     Dates: start: 20160203, end: 20160203
  51. ZINC SULFATE [Concomitant]
     Active Substance: ZINC SULFATE\ZINC SULFATE ANHYDROUS
  52. REFRESH LIQUIGEL [Concomitant]
     Active Substance: CARBOXYMETHYLCELLULOSE SODIUM
  53. CITRACAL [Concomitant]
     Active Substance: CALCIUM CITRATE
  54. PLAQUENIL [Suspect]
     Active Substance: HYDROXYCHLOROQUINE SULFATE
     Indication: RHEUMATOID ARTHRITIS
     Dosage: UNKNOWN
     Route: 065
     Dates: start: 2008
  55. PLAQUENIL [Suspect]
     Active Substance: HYDROXYCHLOROQUINE SULFATE
     Route: 065
     Dates: start: 20120314
  56. NASONEX [Concomitant]
     Active Substance: MOMETASONE FUROATE
  57. ETODOLAC. [Concomitant]
     Active Substance: ETODOLAC
  58. ASPIRIN. [Concomitant]
     Active Substance: ASPIRIN
  59. FISH OIL [Concomitant]
     Active Substance: FISH OIL
  60. COMPAZINE [Concomitant]
     Active Substance: PROCHLORPERAZINE MALEATE
  61. CALCIUM + VITAMIN D [Concomitant]
     Active Substance: CALCIUM\VITAMIN D
  62. ARTHROTEC [Concomitant]
     Active Substance: DICLOFENAC SODIUM\MISOPROSTOL
  63. LIDOCAINE. [Concomitant]
     Active Substance: LIDOCAINE
  64. MVI [Concomitant]
     Active Substance: VITAMINS
  65. GLUCOSAMINE CHONDROITIN [Concomitant]
     Active Substance: CHONDROITIN SULFATE (BOVINE)\GLUCOSAMINE HYDROCHLORIDE

REACTIONS (40)
  - Drug hypersensitivity [Unknown]
  - Carpal tunnel syndrome [Unknown]
  - Constipation [Unknown]
  - Dry eye [Unknown]
  - Cushingoid [Unknown]
  - Pruritus [Unknown]
  - Drug intolerance [Unknown]
  - Osteoarthritis [Unknown]
  - Pulmonary arterial hypertension [Unknown]
  - Spinal column stenosis [Unknown]
  - Anxiety [Unknown]
  - Upper respiratory tract infection [Unknown]
  - Deafness [Not Recovered/Not Resolved]
  - Urinary tract infection [Unknown]
  - Ill-defined disorder [Unknown]
  - Peripheral nerve lesion [Unknown]
  - Ocular hyperaemia [Unknown]
  - Increased appetite [Unknown]
  - Alopecia [Unknown]
  - Aortic valve stenosis [Unknown]
  - Interstitial lung disease [Unknown]
  - Intervertebral disc degeneration [Unknown]
  - Pain in jaw [Recovered/Resolved]
  - Weight decreased [Unknown]
  - Feeling jittery [Unknown]
  - Respiratory failure [Recovered/Resolved]
  - Therapeutic procedure [Unknown]
  - Pneumonitis [Recovered/Resolved]
  - Rheumatoid arthritis [Unknown]
  - Pelvic fracture [Unknown]
  - Rotator cuff syndrome [Unknown]
  - Syncope [Unknown]
  - Neuropathy peripheral [Unknown]
  - Pulmonary mass [Unknown]
  - Road traffic accident [Unknown]
  - Organising pneumonia [Unknown]
  - Depression [Unknown]
  - Sleep disorder [Unknown]
  - Injury [Unknown]
  - Treatment failure [Unknown]

NARRATIVE: CASE EVENT DATE: 201111
